FAERS Safety Report 17359270 (Version 1)
Quarter: 2020Q1

REPORT INFORMATION
  Report Type: Report from Study
  Country: None (occurrence: CO)
  Receive Date: 20200203
  Receipt Date: 20200203
  Transmission Date: 20200409
  Serious: Yes (Death)
  Sender: FDA-Public Use
  Company Number: CO-ABBVIE-20K-036-3261096-00

PATIENT
  Age: 28 Year
  Sex: Female

DRUGS (1)
  1. HUMIRA [Suspect]
     Active Substance: ADALIMUMAB
     Indication: CROHN^S DISEASE
     Route: 058
     Dates: start: 20190614, end: 20190820

REACTIONS (3)
  - Cardio-respiratory arrest [Fatal]
  - Feeling abnormal [Unknown]
  - Condition aggravated [Fatal]

NARRATIVE: CASE EVENT DATE: 20200102
